FAERS Safety Report 15648460 (Version 2)
Quarter: 2019Q1

REPORT INFORMATION
  Report Type: Report from Study
  Country: US (occurrence: US)
  Receive Date: 20181122
  Receipt Date: 20190211
  Transmission Date: 20190417
  Serious: No
  Sender: FDA-Public Use
  Company Number: US-PFIZER INC-2018478083

PATIENT
  Age: 69 Year
  Sex: Female
  Weight: 68.4 kg

DRUGS (3)
  1. ATORVASTATIN [Concomitant]
     Active Substance: ATORVASTATIN
     Indication: BLOOD CHOLESTEROL
     Dosage: 40 MG, 1X/DAY
  2. SUTENT [Suspect]
     Active Substance: SUNITINIB MALATE
     Dosage: 50 MG, ALTERNATE DAY
     Dates: start: 201812
  3. SUTENT [Suspect]
     Active Substance: SUNITINIB MALATE
     Indication: RENAL CELL CARCINOMA STAGE III
     Dosage: 50 MG, CYCLIC (ONCE DAILY FOR 28 DAYS, THEN OFF FOR 14 DAYS)
     Dates: start: 20180705

REACTIONS (12)
  - Nausea [Recovering/Resolving]
  - Intentional product misuse [Unknown]
  - Hypertension [Recovering/Resolving]
  - Asthenia [Recovering/Resolving]
  - Oral pain [Recovering/Resolving]
  - Decreased appetite [Recovering/Resolving]
  - Alopecia [Not Recovered/Not Resolved]
  - Vomiting [Recovering/Resolving]
  - Diarrhoea [Recovering/Resolving]
  - Fatigue [Recovering/Resolving]
  - Rash [Recovering/Resolving]
  - Dysgeusia [Recovering/Resolving]

NARRATIVE: CASE EVENT DATE: 201807
